FAERS Safety Report 23083559 (Version 2)
Quarter: 2023Q4

REPORT INFORMATION
  Report Type: Spontaneous
  Country: SE (occurrence: SE)
  Receive Date: 20231019
  Receipt Date: 20231128
  Transmission Date: 20240109
  Serious: Yes (Other)
  Sender: FDA-Public Use
  Company Number: SE-BEH-2023164341

PATIENT

DRUGS (8)
  1. HUMAN IMMUNOGLOBULIN G [Suspect]
     Active Substance: HUMAN IMMUNOGLOBULIN G
     Route: 064
  2. ENALAPRIL [Suspect]
     Active Substance: ENALAPRIL
  3. SPIRONOLACTONE [Suspect]
     Active Substance: SPIRONOLACTONE
  4. SILDENAFIL [Suspect]
     Active Substance: SILDENAFIL
  5. HYDRALAZINE HCL [Suspect]
     Active Substance: HYDRALAZINE HYDROCHLORIDE
  6. TACROLIMUS [Suspect]
     Active Substance: TACROLIMUS
  7. METHYLPREDNISOLONE [Suspect]
     Active Substance: METHYLPREDNISOLONE
  8. LABETALOL [Suspect]
     Active Substance: LABETALOL\LABETALOL HYDROCHLORIDE

REACTIONS (4)
  - Foetal growth restriction [Unknown]
  - Foetal exposure during pregnancy [Unknown]
  - No adverse event [Unknown]
  - Off label use [Unknown]
